FAERS Safety Report 15892514 (Version 1)
Quarter: 2019Q1

REPORT INFORMATION
  Report Type: Report from Study
  Country: US (occurrence: US)
  Receive Date: 20190130
  Receipt Date: 20190130
  Transmission Date: 20190417
  Serious: No
  Sender: FDA-Public Use
  Company Number: US-EXELIXIS-CABO-18014929

PATIENT
  Age: 52 Year
  Sex: Female

DRUGS (10)
  1. ESTRADIOL. [Concomitant]
     Active Substance: ESTRADIOL
  2. CELEXA [Concomitant]
     Active Substance: CITALOPRAM HYDROBROMIDE
  3. NEURONTIN [Concomitant]
     Active Substance: GABAPENTIN
  4. CHLORTHALIDONE. [Concomitant]
     Active Substance: CHLORTHALIDONE
  5. CABOMETYX [Suspect]
     Active Substance: CABOZANTINIB S-MALATE
     Indication: RENAL CANCER
     Dosage: 60 MG, QD
     Route: 048
     Dates: start: 20180625
  6. ARMOUR THYROID [Concomitant]
     Active Substance: THYROID, PORCINE
  7. ZOFRAN [Concomitant]
     Active Substance: ONDANSETRON HYDROCHLORIDE
     Dosage: UNK
  8. PEPCID [Concomitant]
     Active Substance: FAMOTIDINE
  9. PREDNISONE. [Concomitant]
     Active Substance: PREDNISONE
  10. PRILOSEC [Concomitant]
     Active Substance: OMEPRAZOLE MAGNESIUM

REACTIONS (9)
  - Skin erosion [Unknown]
  - Alopecia [Unknown]
  - Abdominal discomfort [Unknown]
  - Myalgia [Unknown]
  - Paraesthesia [Unknown]
  - Nausea [Unknown]
  - Diarrhoea [Unknown]
  - Headache [Unknown]
  - Fatigue [Unknown]

NARRATIVE: CASE EVENT DATE: 2018
